FAERS Safety Report 15568853 (Version 1)
Quarter: 2018Q4

REPORT INFORMATION
  Report Type: Spontaneous
  Country: US (occurrence: US)
  Receive Date: 20181031
  Receipt Date: 20181031
  Transmission Date: 20190205
  Serious: No
  Sender: FDA-Public Use
  Company Number: US-ELI_LILLY_AND_COMPANY-US201810013147

PATIENT
  Age: 34 Year
  Sex: Female

DRUGS (1)
  1. TRULICITY [Suspect]
     Active Substance: DULAGLUTIDE
     Indication: INSULIN RESISTANCE
     Dosage: 1.5 MG, UNKNOWN
     Route: 065

REACTIONS (4)
  - Product dose omission [Unknown]
  - Product storage error [Unknown]
  - Injection site injury [Unknown]
  - Off label use [Unknown]

NARRATIVE: CASE EVENT DATE: 20181011
